FAERS Safety Report 19990979 (Version 1)
Quarter: 2021Q4

REPORT INFORMATION
  Report Type: Spontaneous
  Country: US (occurrence: US)
  Receive Date: 20211025
  Receipt Date: 20211025
  Transmission Date: 20220303
  Serious: Yes (Other)
  Sender: FDA-Public Use
  Company Number: None

PATIENT
  Age: 45 Year
  Sex: Female

DRUGS (5)
  1. HUMIRA [Suspect]
     Active Substance: ADALIMUMAB
     Indication: Psoriatic arthropathy
     Dosage: ?          OTHER FREQUENCY:UNKNOWN;
  2. METHOTREXATE [Concomitant]
     Active Substance: METHOTREXATE
  3. LINZESS [Concomitant]
     Active Substance: LINACLOTIDE
  4. FOLIC ACID [Concomitant]
     Active Substance: FOLIC ACID
  5. LEUCOVORIN [Concomitant]
     Active Substance: LEUCOVORIN

REACTIONS (2)
  - Condition aggravated [None]
  - Rotator cuff repair [None]

NARRATIVE: CASE EVENT DATE: 20210923
